FAERS Safety Report 25199591 (Version 2)
Quarter: 2025Q2

REPORT INFORMATION
  Report Type: Report from Study
  Country: US (occurrence: US)
  Receive Date: 20250415
  Receipt Date: 20250428
  Transmission Date: 20250716
  Serious: Yes (Other)
  Sender: ALEXION PHARMACEUTICALS
  Company Number: US-ASTRAZENECA-202504USA008180US

PATIENT

DRUGS (3)
  1. OLAPARIB [Suspect]
     Active Substance: OLAPARIB
     Indication: Prostate cancer
     Dosage: 200 MILLIGRAM, BID
  2. CHLORTHALIDONE [Concomitant]
     Active Substance: CHLORTHALIDONE
     Route: 065
  3. ABIRATERONE ACETATE [Concomitant]
     Active Substance: ABIRATERONE ACETATE
     Route: 065

REACTIONS (4)
  - Syncope [Unknown]
  - Brain fog [Recovered/Resolved]
  - Dizziness [Recovered/Resolved]
  - Hypotension [Unknown]
